FAERS Safety Report 25213480 (Version 1)
Quarter: 2025Q2

REPORT INFORMATION
  Report Type: Spontaneous
  Country: US (occurrence: None)
  Receive Date: 20250417
  Receipt Date: 20250417
  Transmission Date: 20250716
  Serious: Yes (Hospitalization, Other)
  Sender: FDA-CTU
  Company Number: None

PATIENT
  Age: 79 Year
  Sex: Male

DRUGS (1)
  1. CARVYKTI [Suspect]
     Active Substance: CILTACABTAGENE AUTOLEUCEL
     Indication: Plasma cell myeloma
     Dates: start: 20250305, end: 20250305

REACTIONS (4)
  - Lymphocyte adoptive therapy [None]
  - IIIrd nerve paralysis [None]
  - Facial paralysis [None]
  - Asthenia [None]

NARRATIVE: CASE EVENT DATE: 20250328
